FAERS Safety Report 12714708 (Version 2)
Quarter: 2016Q3

REPORT INFORMATION
  Report Type: Report from Study
  Country: US (occurrence: US)
  Receive Date: 20160905
  Receipt Date: 20160907
  Transmission Date: 20161109
  Serious: Yes (Hospitalization)
  Sender: FDA-Public Use
  Company Number: US-GILEAD-2016-0231015

PATIENT
  Age: 80 Year
  Sex: Female
  Weight: 85.71 kg

DRUGS (17)
  1. KLOR-CON [Concomitant]
     Active Substance: POTASSIUM CHLORIDE
  2. ASA [Concomitant]
     Active Substance: ASPIRIN
  3. TORSEMIDE. [Concomitant]
     Active Substance: TORSEMIDE
  4. METOPROLOL. [Concomitant]
     Active Substance: METOPROLOL
  5. ZOCOR [Concomitant]
     Active Substance: SIMVASTATIN
  6. SYNTHROID [Concomitant]
     Active Substance: LEVOTHYROXINE SODIUM
  7. VITAMIN D                          /00107901/ [Concomitant]
     Active Substance: ERGOCALCIFEROL
  8. PRILOSEC [Concomitant]
     Active Substance: OMEPRAZOLE MAGNESIUM
  9. COUMADIN [Concomitant]
     Active Substance: WARFARIN SODIUM
  10. CLARITIN [Concomitant]
     Active Substance: LORATADINE
  11. ASPIRIN                            /00002701/ [Concomitant]
     Active Substance: ASPIRIN
  12. ADCIRCA [Concomitant]
     Active Substance: TADALAFIL
  13. SIMVASTATIN. [Concomitant]
     Active Substance: SIMVASTATIN
  14. VITAMIN B12 [Concomitant]
     Active Substance: CYANOCOBALAMIN
  15. TUSSIN                             /00048001/ [Concomitant]
  16. LOPRESSOR [Concomitant]
     Active Substance: METOPROLOL TARTRATE
  17. AMBRISENTAN [Suspect]
     Active Substance: AMBRISENTAN
     Indication: PRODUCT USED FOR UNKNOWN INDICATION
     Dosage: 5 MG, UNK
     Route: 065
     Dates: start: 20160805

REACTIONS (3)
  - Hypotension [Recovered/Resolved]
  - Dizziness [Recovered/Resolved]
  - Rectal haemorrhage [Recovered/Resolved]

NARRATIVE: CASE EVENT DATE: 20160808
